FAERS Safety Report 17279773 (Version 1)
Quarter: 2020Q1

REPORT INFORMATION
  Report Type: Spontaneous
  Country: GB (occurrence: GB)
  Receive Date: 20200116
  Receipt Date: 20200116
  Transmission Date: 20200409
  Serious: Yes (Other)
  Sender: FDA-Public Use
  Company Number: GB-TEVA-2020-GB-1168246

PATIENT
  Sex: Female

DRUGS (8)
  1. LAMOTRIGINE. [Suspect]
     Active Substance: LAMOTRIGINE
     Dosage: 200 MG
  2. LITHIUM CARBONATE. [Suspect]
     Active Substance: LITHIUM CARBONATE
     Dosage: 1 MILLIGRAM DAILY;
  3. OLANZAPINE. [Suspect]
     Active Substance: OLANZAPINE
     Dosage: 10 MILLIGRAM DAILY;
  4. CALCIUM D3 [Suspect]
     Active Substance: CALCIUM\CHOLECALCIFEROL
     Route: 065
  5. LURASIDONE [Suspect]
     Active Substance: LURASIDONE
     Dosage: 111 MILLIGRAM DAILY;
  6. CLONAZEPAM. [Suspect]
     Active Substance: CLONAZEPAM
     Dosage: 2 MILLIGRAM DAILY;
  7. SERTRALINE [Suspect]
     Active Substance: SERTRALINE HYDROCHLORIDE
     Route: 065
  8. PREGABALIN. [Suspect]
     Active Substance: PREGABALIN
     Dosage: 400 MILLIGRAM DAILY;

REACTIONS (3)
  - Depression [Unknown]
  - Hallucination [Unknown]
  - Delusion [Unknown]
